FAERS Safety Report 6326785-5 (Version None)
Quarter: 2009Q3

REPORT INFORMATION
  Report Type: 
  Country: None (occurrence: None)
  Receive Date: 20090825
  Receipt Date: 20090811
  Transmission Date: 20100115
  Serious: Yes (Life-Threatening, Hospitalization)
  Sender: FDA-Public Use
  Company Number: GB-ROCHE-649721

PATIENT
  Age: 16 Year
  Sex: Female

DRUGS (1)
  1. TAMIFLU [Suspect]
     Dosage: REPORTED AS PRESCRIBED A DOUBLE DOSE.
     Route: 065
     Dates: start: 20090501

REACTIONS (1)
  - RESPIRATORY FAILURE [None]
